FAERS Safety Report 8289966-X (Version None)
Quarter: 2012Q2

REPORT INFORMATION
  Report Type: 
  Country: None (occurrence: None)
  Receive Date: 20120417
  Receipt Date: 20120413
  Transmission Date: 20120825
  Serious: Yes (Death)
  Sender: FDA-Public Use
  Company Number: US-ASTRAZENECA-2012SE10894

PATIENT
  Age: 39 Year
  Sex: Male
  Weight: 79.4 kg

DRUGS (4)
  1. AMANTADINE HCL [Concomitant]
  2. SEROQUEL [Suspect]
     Indication: SCHIZOPHRENIA, PARANOID TYPE
     Route: 048
  3. SEROQUEL [Suspect]
     Route: 048
     Dates: start: 20060101, end: 20120116
  4. PROLIXIN [Concomitant]

REACTIONS (8)
  - PARANOIA [None]
  - OFF LABEL USE [None]
  - COMPLETED SUICIDE [None]
  - DECREASED APPETITE [None]
  - EXTRAPYRAMIDAL DISORDER [None]
  - OVERDOSE [None]
  - DROWNING [None]
  - DEPRESSION [None]
